FAERS Safety Report 18625361 (Version 2)
Quarter: 2021Q1

REPORT INFORMATION
  Report Type: Spontaneous
  Country: US (occurrence: US)
  Receive Date: 20201216
  Receipt Date: 20210318
  Transmission Date: 20210419
  Serious: No
  Sender: FDA-Public Use
  Company Number: US-CATALYST PHARMACEUTICALS, INC-2020CAT00518

PATIENT
  Sex: Male

DRUGS (2)
  1. FIRDAPSE [Suspect]
     Active Substance: AMIFAMPRIDINE PHOSPHATE
     Indication: MYASTHENIC SYNDROME
     Dosage: UNK, 3X/DAY (40 MG DAILY DOSE)
     Route: 048
     Dates: start: 2019
  2. FIRDAPSE [Suspect]
     Active Substance: AMIFAMPRIDINE PHOSPHATE
     Dosage: TAPERED DOWN WITH PLAN TO DISCONTINUE
     Route: 048

REACTIONS (1)
  - Pyrexia [Recovered/Resolved]
